FAERS Safety Report 8937109 (Version 1)
Quarter: 2012Q4

REPORT INFORMATION
  Report Type: Spontaneous
  Country: US (occurrence: None)
  Receive Date: 20121128
  Receipt Date: 20121128
  Transmission Date: 20130627
  Serious: Yes (Hospitalization)
  Sender: FDA-Public Use
  Company Number: None

PATIENT
  Age: 67 Year
  Sex: Male

DRUGS (2)
  1. LUPRON DEPOT [Suspect]
  2. ENALAPRIL [Suspect]
     Dosage: 20 mg BID po
     Route: 048

REACTIONS (1)
  - Angioedema [None]
